FAERS Safety Report 8816520 (Version 1)
Quarter: 2012Q4

REPORT INFORMATION
  Report Type: Spontaneous
  Country: US (occurrence: None)
  Receive Date: 20120927
  Receipt Date: 20120927
  Transmission Date: 20130627
  Serious: Yes (Other)
  Sender: FDA-Public Use
  Company Number: ADR-2012-01760

PATIENT
  Sex: Male

DRUGS (3)
  1. LIORESAL [Suspect]
     Indication: SPASTICITY
  2. LIORESAL [Suspect]
     Indication: HEAD INJURY
  3. LIORESAL [Suspect]
     Indication: BRAIN INJURY

REACTIONS (2)
  - Cellulitis [None]
  - Arthritis infective [None]
